FAERS Safety Report 11892884 (Version 1)
Quarter: 2016Q1

REPORT INFORMATION
  Report Type: Spontaneous
  Country: JO (occurrence: JO)
  Receive Date: 20160106
  Receipt Date: 20160106
  Transmission Date: 20160526
  Serious: Yes (Other)
  Sender: FDA-Public Use
  Company Number: JO-BAYER-2015-496705

PATIENT
  Sex: Female

DRUGS (1)
  1. BETAFERON [Suspect]
     Active Substance: INTERFERON BETA-1B
     Dosage: 1 DF, ONCE
     Route: 030
     Dates: start: 2014, end: 2014

REACTIONS (2)
  - Dermatitis bullous [Recovered/Resolved]
  - Incorrect route of drug administration [None]

NARRATIVE: CASE EVENT DATE: 2014
